FAERS Safety Report 11340588 (Version 2)
Quarter: 2015Q3

REPORT INFORMATION
  Report Type: Report from Study
  Country: TW (occurrence: TW)
  Receive Date: 20150805
  Receipt Date: 20150828
  Transmission Date: 20151125
  Serious: Yes (Hospitalization)
  Sender: FDA-Public Use
  Company Number: TW-PFIZER INC-2015255145

PATIENT
  Age: 65 Year
  Sex: Male
  Weight: 69.25 kg

DRUGS (7)
  1. AXITINIB [Suspect]
     Active Substance: AXITINIB
     Indication: HEPATOCELLULAR CARCINOMA
     Dosage: 5MG, BID
     Route: 048
     Dates: start: 20131001, end: 20140305
  2. ZEFFIX [Concomitant]
     Active Substance: LAMIVUDINE
     Indication: CHRONIC HEPATITIS B
     Dosage: UNK
     Dates: start: 20150612
  3. AXITINIB [Suspect]
     Active Substance: AXITINIB
     Dosage: 3MG BID
     Route: 048
     Dates: start: 20140306, end: 20140514
  4. HEPSERA [Concomitant]
     Active Substance: ADEFOVIR DIPIVOXIL
     Indication: CHRONIC HEPATITIS B
     Dosage: UNK
     Route: 048
     Dates: start: 20150612
  5. AXITINIB [Suspect]
     Active Substance: AXITINIB
     Dosage: 2MG, BID
     Route: 048
     Dates: start: 20140515, end: 20150623
  6. PROCTOSEDYL /01569101/ [Concomitant]
     Indication: HAEMORRHOIDS
     Dosage: UNK
     Route: 050
     Dates: start: 20150723
  7. TETRACYCLINE [Concomitant]
     Active Substance: TETRACYCLINE
     Indication: HAEMORRHOIDS
     Dosage: UNK
     Route: 061
     Dates: start: 20150723

REACTIONS (1)
  - Blood bilirubin increased [Recovering/Resolving]

NARRATIVE: CASE EVENT DATE: 20150721
